FAERS Safety Report 6568595-X (Version None)
Quarter: 2010Q1

REPORT INFORMATION
  Report Type: 
  Country: None (occurrence: None)
  Receive Date: 20100203
  Receipt Date: 20100125
  Transmission Date: 20100710
  Serious: Yes (Death)
  Sender: FDA-Public Use
  Company Number: US-BAXTER-2009BH019347

PATIENT
  Age: 56 Year
  Sex: Male

DRUGS (3)
  1. DIANEAL [Suspect]
     Indication: PERITONEAL DIALYSIS
     Route: 033
     Dates: start: 20081219
  2. DIANEAL [Suspect]
     Indication: PERITONEAL DIALYSIS
     Route: 033
     Dates: start: 20081219
  3. BAG OF SOLUTION [Concomitant]
     Indication: PERITONEAL DIALYSIS
     Route: 033

REACTIONS (2)
  - CACHEXIA [None]
  - CARDIAC ARREST [None]
